FAERS Safety Report 7430158-1 (Version None)
Quarter: 2011Q2

REPORT INFORMATION
  Report Type: 
  Country: None (occurrence: None)
  Receive Date: 20110421
  Receipt Date: 20110407
  Transmission Date: 20111010
  Serious: Yes (Other)
  Sender: FDA-Public Use
  Company Number: US-CELGENEUS-163-21880-11021784

PATIENT
  Sex: Female
  Weight: 68.1 kg

DRUGS (15)
  1. PLAVIX [Concomitant]
     Dosage: 75 MILLIGRAM
     Route: 048
  2. PRAVASTATIN [Concomitant]
     Dosage: 80 MILLIGRAM
     Route: 048
  3. VITAMIN B12 AND FOLIC ACID [Concomitant]
     Dosage: 500/400MCG
     Route: 048
  4. RITUXAN [Concomitant]
     Indication: NON-HODGKIN'S LYMPHOMA
     Dosage: 375 MILLIGRAM/SQ. METER
     Route: 048
     Dates: start: 20110210, end: 20110310
  5. ASPIRIN [Concomitant]
     Dosage: 81 MILLIGRAM
     Route: 048
  6. STOOL SOFTENER [Concomitant]
     Dosage: 50 MILLIGRAM
     Route: 048
  7. ATIVAN [Concomitant]
     Indication: SLEEP DISORDER
     Dosage: 1 MILLIGRAM
     Route: 048
  8. PANTOPRAZOLE [Concomitant]
     Dosage: 40 MILLIGRAM
     Route: 048
  9. POTASSIUM [Concomitant]
     Dosage: 99 MILLIGRAM
     Route: 048
  10. LOVAZA [Concomitant]
     Dosage: 1 GRAM
     Route: 048
  11. REVLIMID [Suspect]
     Indication: NON-HODGKIN'S LYMPHOMA
     Dosage: 25 MILLIGRAM
     Route: 048
     Dates: start: 20110203
  12. GLIPIZIDE [Concomitant]
     Dosage: 10 MILLIGRAM
     Route: 048
  13. HUMULIN N [Concomitant]
     Route: 058
  14. SYNTHROID [Concomitant]
     Dosage: 50 MICROGRAM
     Route: 048
  15. JANUVIA [Concomitant]
     Dosage: 100 MILLIGRAM
     Route: 048

REACTIONS (4)
  - JOINT SWELLING [None]
  - DIZZINESS [None]
  - NEUROPATHY PERIPHERAL [None]
  - ARRHYTHMIA [None]
